FAERS Safety Report 20375909 (Version 1)
Quarter: 2022Q1

REPORT INFORMATION
  Report Type: Spontaneous
  Country: US (occurrence: None)
  Receive Date: 20220125
  Receipt Date: 20220125
  Transmission Date: 20220423
  Serious: Yes (Hospitalization)
  Sender: FDA-Public Use
  Company Number: None

PATIENT
  Sex: Male

DRUGS (2)
  1. TOBI PODHALER [Suspect]
     Active Substance: TOBRAMYCIN
     Indication: Cystic fibrosis
     Dosage: 4 CAPSULES TWICE DAILY INHALATION ??- ON HOLD
     Route: 055
     Dates: start: 20210731
  2. TOBI PODHALER [Suspect]
     Active Substance: TOBRAMYCIN
     Indication: Pseudomonas infection

REACTIONS (3)
  - Therapy interrupted [None]
  - Arterial rupture [None]
  - Post procedural complication [None]
